FAERS Safety Report 6593254-7 (Version None)
Quarter: 2010Q1

REPORT INFORMATION
  Report Type: 
  Country: None (occurrence: None)
  Receive Date: 20100222
  Receipt Date: 20100208
  Transmission Date: 20100710
  Serious: Yes (Other)
  Sender: FDA-Public Use
  Company Number: GB-BAYER-GB-2007-006992

PATIENT
  Age: 66 Year
  Sex: Female

DRUGS (2)
  1. FLUDARA [Suspect]
     Indication: CHRONIC LYMPHOCYTIC LEUKAEMIA
     Dosage: 24 MG/M2, 4XCYCLE X 5D [DAILY DOSE: 24 MG/M2]
     Route: 048
  2. CYCLOPHOSPHAMIDE [Suspect]
     Indication: CHRONIC LYMPHOCYTIC LEUKAEMIA
     Dosage: 150 MG/M2, 4 CYCLES

REACTIONS (4)
  - AUTOIMMUNE NEUTROPENIA [None]
  - LYMPHOPENIA [None]
  - MOUTH ULCERATION [None]
  - THROMBOCYTOPENIA [None]
